FAERS Safety Report 12252215 (Version 1)
Quarter: 2016Q2

REPORT INFORMATION
  Report Type: Spontaneous
  Country: US (occurrence: US)
  Receive Date: 20160411
  Receipt Date: 20160411
  Transmission Date: 20160815
  Serious: No
  Sender: FDA-Public Use
  Company Number: US-TEVA-647189USA

PATIENT
  Sex: Male

DRUGS (1)
  1. LEVALBUTEROL. [Suspect]
     Active Substance: LEVALBUTEROL
     Indication: BRONCHOSPASM
     Dates: start: 20160321, end: 20160322

REACTIONS (2)
  - Product use issue [Unknown]
  - Dry mouth [Unknown]
